FAERS Safety Report 6829533-5 (Version None)
Quarter: 2010Q3

REPORT INFORMATION
  Report Type: 
  Country: None (occurrence: None)
  Receive Date: 20100709
  Receipt Date: 20070329
  Transmission Date: 20110219
  Serious: No
  Sender: FDA-Public Use
  Company Number: US-PFIZER INC-2007003439

PATIENT
  Sex: Male
  Weight: 66.68 kg

DRUGS (9)
  1. CHANTIX [Suspect]
     Indication: SMOKING CESSATION THERAPY
     Dates: start: 20070103
  2. COREG [Concomitant]
  3. ZETIA [Concomitant]
  4. ACETYLSALICYLIC ACID [Concomitant]
  5. ATACAND [Concomitant]
  6. XANAX [Concomitant]
  7. DIGITEK [Concomitant]
  8. ZANTAC [Concomitant]
  9. SPIRIVA [Concomitant]

REACTIONS (2)
  - DRUG INEFFECTIVE [None]
  - HEART RATE INCREASED [None]
